FAERS Safety Report 16748391 (Version 1)
Quarter: 2019Q3

REPORT INFORMATION
  Report Type: Other
  Country: DE (occurrence: DE)
  Receive Date: 20190828
  Receipt Date: 20190828
  Transmission Date: 20191005
  Serious: No
  Sender: FDA-Public Use
  Company Number: DE-LUPIN PHARMACEUTICALS INC.-2019-04900

PATIENT
  Age: 47 Year
  Sex: Male
  Weight: 74 kg

DRUGS (3)
  1. SIMVASTATIN. [Suspect]
     Active Substance: SIMVASTATIN
     Indication: ACUTE MYOCARDIAL INFARCTION
     Dosage: UNK
     Route: 065
     Dates: start: 2016
  2. ROSUVASTATIN. [Suspect]
     Active Substance: ROSUVASTATIN
     Indication: DISEASE PROGRESSION
     Dosage: UNK
     Route: 065
     Dates: start: 2019
  3. ATORVASTATIN [Suspect]
     Active Substance: ATORVASTATIN
     Indication: ARTERIAL OCCLUSIVE DISEASE
     Dosage: UNK
     Route: 065
     Dates: start: 2014

REACTIONS (1)
  - Myalgia [Recovering/Resolving]
